FAERS Safety Report 8116389-6 (Version None)
Quarter: 2012Q1

REPORT INFORMATION
  Report Type: 
  Country: None (occurrence: None)
  Receive Date: 20120206
  Receipt Date: 20120131
  Transmission Date: 20120608
  Serious: Yes (Other)
  Sender: FDA-Public Use
  Company Number: NO-GLAXOSMITHKLINE-B0779445A

PATIENT
  Age: 53 Year
  Sex: Female

DRUGS (1)
  1. ONDANSETRON [Suspect]
     Indication: PRODUCT USED FOR UNKNOWN INDICATION
     Route: 065

REACTIONS (3)
  - MUSCLE SPASMS [None]
  - DYSTONIA [None]
  - HYPERTONIA [None]
